FAERS Safety Report 9627980 (Version 1)
Quarter: 2013Q4

REPORT INFORMATION
  Report Type: Report from Study
  Country: DE (occurrence: DE)
  Receive Date: 20131016
  Receipt Date: 20131016
  Transmission Date: 20140711
  Serious: Yes (Disabling)
  Sender: FDA-Public Use
  Company Number: DE-ROCHE-1285543

PATIENT
  Sex: Female
  Weight: 109 kg

DRUGS (4)
  1. TRASTUZUMAB [Suspect]
     Indication: HER-2 POSITIVE BREAST CANCER
     Route: 042
     Dates: start: 20130301
  2. TRASTUZUMAB [Suspect]
     Dosage: DATE OF LAST DOSE PRIOR TO EVENT: 12/JUL/2013
     Route: 042
     Dates: end: 20130808
  3. DOCETAXEL [Suspect]
     Indication: HER-2 POSITIVE BREAST CANCER
     Dosage: DATE OF LAST DOSE PRIOR TO EVENT: 17/APR/2013
     Route: 042
     Dates: start: 20130301
  4. PERTUZUMAB [Suspect]
     Indication: HER-2 POSITIVE BREAST CANCER
     Dosage: DATE OF LAST DOSE PRIOR TO EVENT: 12/JUL/2013
     Route: 042
     Dates: start: 20130301, end: 20130808

REACTIONS (1)
  - Paraesthesia [Not Recovered/Not Resolved]
